FAERS Safety Report 18497016 (Version 2)
Quarter: 2020Q4

REPORT INFORMATION
  Report Type: Spontaneous
  Country: US (occurrence: US)
  Receive Date: 20201112
  Receipt Date: 20201209
  Transmission Date: 20210114
  Serious: Yes (Other)
  Sender: FDA-Public Use
  Company Number: US-BIOHAVEN PHARMACEUTICALS-2020BHV00744

PATIENT
  Age: 58 Year
  Sex: Female
  Weight: 63.04 kg

DRUGS (11)
  1. NURTEC ODT [Suspect]
     Active Substance: RIMEGEPANT SULFATE
     Indication: MIGRAINE
     Dosage: 75 MG, ONCE
     Route: 048
     Dates: start: 20201029
  2. KEPPRA GENERIC [Suspect]
     Active Substance: LEVETIRACETAM
     Dosage: 1000 MG, 2X/DAY
     Dates: end: 2020
  3. DIGOXIN. [Suspect]
     Active Substance: DIGOXIN
     Indication: CARDIAC DISORDER
     Dosage: 250 ?G
  4. CARVEDILOL. [Suspect]
     Active Substance: CARVEDILOL
  5. SIMVASTATIN. [Suspect]
     Active Substance: SIMVASTATIN
  6. ESCITALOPRAM [Suspect]
     Active Substance: ESCITALOPRAM OXALATE
     Indication: ANXIETY
     Dosage: 20 MG, 1X/DAY IN MORNINGS
  7. KEPPRA GENERIC [Suspect]
     Active Substance: LEVETIRACETAM
     Dosage: 1.5 TABLETS, 1X/DAY IN THE PM
     Dates: start: 2020
  8. KEPPRA GENERIC [Suspect]
     Active Substance: LEVETIRACETAM
     Dosage: 1 TABLETS, 1X/DAY IN THE MORNING
     Dates: start: 2020
  9. LAMICTAL [Suspect]
     Active Substance: LAMOTRIGINE
     Dosage: 200 MG, 2X/DAY
  10. CLOMIPERIDE [GLIMEPIRIDE] [Suspect]
     Active Substance: GLIMEPIRIDE
     Indication: DIABETES MELLITUS
  11. UNSPEDIFIED MEDICATION FOR SUGAR [Suspect]
     Active Substance: UNSPECIFIED INGREDIENT
     Indication: DIABETES MELLITUS

REACTIONS (3)
  - Petit mal epilepsy [Recovered/Resolved]
  - Dry mouth [Not Recovered/Not Resolved]
  - Drug interaction [Recovered/Resolved]

NARRATIVE: CASE EVENT DATE: 20201029
